FAERS Safety Report 5672752-4 (Version None)
Quarter: 2008Q1

REPORT INFORMATION
  Report Type: 
  Country: None (occurrence: None)
  Receive Date: 20080319
  Receipt Date: 20071109
  Transmission Date: 20080703
  Serious: No
  Sender: FDA-Public Use
  Company Number: US-KINGPHARMUSA00001-K200701455

PATIENT

DRUGS (3)
  1. ALTACE [Suspect]
     Indication: BLOOD PRESSURE MANAGEMENT
     Dosage: 2.5 MG, QD
     Route: 048
     Dates: start: 20071023
  2. TOPROL [Concomitant]
     Indication: BLOOD PRESSURE
     Dosage: 25 MG, QD
     Route: 048
  3. OMEGA 3 [Concomitant]
     Dosage: 1 CAPSULE QD
     Route: 048

REACTIONS (5)
  - BALANCE DISORDER [None]
  - DIZZINESS [None]
  - EAR DISCOMFORT [None]
  - HYPOAESTHESIA [None]
  - PARAESTHESIA [None]
